FAERS Safety Report 8251265-X (Version None)
Quarter: 2012Q2

REPORT INFORMATION
  Report Type: 
  Country: None (occurrence: None)
  Receive Date: 20120402
  Receipt Date: 20120329
  Transmission Date: 20120825
  Serious: No
  Sender: FDA-Public Use
  Company Number: US-PFIZER INC-2012081404

PATIENT
  Sex: Female
  Weight: 55.782 kg

DRUGS (4)
  1. CHANTIX [Suspect]
     Dosage: 0.5 MG, UNK
     Dates: start: 20120301
  2. CHANTIX [Suspect]
     Indication: SMOKING CESSATION THERAPY
     Dosage: 0.5 MG, DAILY
     Dates: start: 20120318, end: 20120301
  3. ASPIRIN [Concomitant]
     Dosage: UNK
  4. ZOLOFT [Suspect]
     Dosage: 100MG BY SPLITTING THE TABLET,DAILY
     Route: 048

REACTIONS (3)
  - WEIGHT INCREASED [None]
  - FEELING ABNORMAL [None]
  - ABDOMINAL DISTENSION [None]
